FAERS Safety Report 9850623 (Version 3)
Quarter: 2014Q1

REPORT INFORMATION
  Report Type: Spontaneous
  Country: US (occurrence: US)
  Receive Date: 20140128
  Receipt Date: 20140217
  Transmission Date: 20141002
  Serious: Yes (Hospitalization, Other)
  Sender: FDA-Public Use
  Company Number: US-009507513-1311USA009919

PATIENT
  Age: 63 Year
  Sex: Male
  Weight: 73.47 kg

DRUGS (28)
  1. ATRIPLA [Suspect]
     Indication: HIV INFECTION
     Dosage: 1 DF, QD
     Route: 048
     Dates: start: 20130924, end: 20131114
  2. PHENYTOIN [Suspect]
     Indication: CONVULSION
     Dosage: 100 MG, TID
     Route: 048
     Dates: start: 20131008, end: 20131114
  3. PHENYTOIN [Suspect]
     Dosage: UNK
     Route: 042
  4. NEVIRAPINE [Suspect]
     Indication: HIV INFECTION
     Dosage: UNK, UNKNOWN
     Route: 065
     Dates: end: 20130924
  5. TRIZIVIR [Suspect]
     Indication: HIV INFECTION
     Dosage: UNK, UNKNOWN
     Route: 065
     Dates: end: 20130924
  6. ALBUTEROL [Concomitant]
  7. ATORVASTATIN [Concomitant]
  8. CETIRIZINE HYDROCHLORIDE [Concomitant]
  9. VITAMIN D (UNSPECIFIED) [Concomitant]
  10. FUROSEMIDE [Concomitant]
  11. GABAPENTIN [Concomitant]
  12. HYDROCHLOROTHIAZIDE (+) TRIAMTERENE [Concomitant]
  13. VICODIN [Concomitant]
  14. INSULIN GLARGINE [Concomitant]
  15. INSULIN ASPART [Concomitant]
  16. ISOSORBIDE MONONITRATE [Concomitant]
  17. LAMOTRIGINE [Concomitant]
  18. LISINOPRIL [Concomitant]
  19. LORAZEPAM [Concomitant]
  20. MAGNESIUM OXIDE [Concomitant]
  21. METOPROLOL TARTRATE [Concomitant]
  22. NAPROXEN [Concomitant]
  23. NITROGLYCERIN [Concomitant]
  24. OMEPRAZOLE [Concomitant]
  25. OXYBUTYNIN [Concomitant]
  26. PRAZOSIN [Concomitant]
  27. SERTRALINE HYDROCHLORIDE [Concomitant]
  28. ZOLPIDEM TARTRATE [Concomitant]

REACTIONS (1)
  - Convulsion [Recovered/Resolved]
